FAERS Safety Report 9852355 (Version 3)
Quarter: 2014Q2

REPORT INFORMATION
  Report Type: Spontaneous
  Country: JP (occurrence: JP)
  Receive Date: 20140129
  Receipt Date: 20140407
  Transmission Date: 20141212
  Serious: Yes (Hospitalization, Other)
  Sender: FDA-Public Use
  Company Number: JP-ASTELLAS-2014US000843

PATIENT
  Age: 39 Year
  Sex: Male

DRUGS (18)
  1. AMBISOME [Suspect]
     Indication: MENINGITIS CRYPTOCOCCAL
     Dosage: 3 MG/KG, UID/QD
     Route: 041
     Dates: start: 20130902, end: 20130909
  2. AMBISOME [Suspect]
     Dosage: 4 MG/KG, UID/QD
     Route: 041
     Dates: start: 20130909, end: 20130916
  3. AMBISOME [Suspect]
     Dosage: 5 MG/KG, UID/QD
     Route: 041
     Dates: start: 20130916, end: 20130920
  4. AMBISOME [Suspect]
     Dosage: 6 MG/KG, UID/QD
     Route: 041
     Dates: start: 20130920, end: 20131209
  5. ITRIZOLE [Suspect]
     Indication: MENINGITIS CRYPTOCOCCAL
     Dosage: 400 MG, UID/QD
     Route: 041
     Dates: start: 20131029, end: 20131212
  6. PRODIF [Suspect]
     Indication: MENINGITIS CRYPTOCOCCAL
     Dosage: 200 MG, UID/QD
     Route: 041
     Dates: start: 20131214, end: 20140110
  7. FLUCONAZOLE [Suspect]
     Indication: MENINGITIS CRYPTOCOCCAL
     Dosage: 400 MG, UID/QD
     Route: 048
     Dates: start: 20140111
  8. FLUCONAZOLE [Suspect]
     Dosage: 200 MG, UID/QD
     Route: 048
  9. ANCOTIL [Concomitant]
     Indication: PRODUCT USED FOR UNKNOWN INDICATION
     Dosage: UNK
     Route: 065
  10. IMMUNOGLOBULIN HUMAN [Concomitant]
     Indication: PRODUCT USED FOR UNKNOWN INDICATION
     Dosage: UNK
     Route: 065
     Dates: start: 20130824
  11. VFEND [Concomitant]
     Indication: PRODUCT USED FOR UNKNOWN INDICATION
     Dosage: UNK
     Route: 065
     Dates: start: 20130824, end: 20130906
  12. ZYLORIC [Concomitant]
     Indication: PRODUCT USED FOR UNKNOWN INDICATION
     Dosage: UNK
     Route: 065
     Dates: start: 20130825
  13. TAKEPRON [Concomitant]
     Indication: PRODUCT USED FOR UNKNOWN INDICATION
     Dosage: UNK
     Route: 065
     Dates: start: 20130825
  14. PURSENNIDE                         /00142207/ [Concomitant]
     Indication: PRODUCT USED FOR UNKNOWN INDICATION
     Dosage: UNK
     Route: 065
     Dates: start: 20130825
  15. PENTAGIN                           /00052103/ [Concomitant]
     Indication: PRODUCT USED FOR UNKNOWN INDICATION
     Dosage: UNK
     Route: 065
     Dates: start: 20130827
  16. GLYCENON [Concomitant]
     Indication: PRODUCT USED FOR UNKNOWN INDICATION
     Dosage: UNK
     Route: 065
     Dates: start: 20130829, end: 20131028
  17. ASPARA POTASSIUM [Concomitant]
     Indication: PRODUCT USED FOR UNKNOWN INDICATION
     Dosage: UNK
     Route: 065
     Dates: start: 20130919
  18. ROPION [Concomitant]
     Indication: PRODUCT USED FOR UNKNOWN INDICATION
     Dosage: UNK
     Route: 065
     Dates: end: 20130920

REACTIONS (2)
  - Leukoencephalopathy [Recovered/Resolved with Sequelae]
  - Renal impairment [Not Recovered/Not Resolved]
